FAERS Safety Report 20963759 (Version 1)
Quarter: 2022Q2

REPORT INFORMATION
  Report Type: Spontaneous
  Country: JP (occurrence: JP)
  Receive Date: 20220615
  Receipt Date: 20220615
  Transmission Date: 20220721
  Serious: Yes (Death, Life-Threatening, Hospitalization, Other)
  Sender: FDA-Public Use
  Company Number: JP-PFIZER INC-202200810199

PATIENT
  Age: 8 Decade
  Sex: Male

DRUGS (4)
  1. METHYLPREDNISOLONE [Suspect]
     Active Substance: METHYLPREDNISOLONE
     Indication: Breakthrough COVID-19
     Dosage: 2 MG/KG, DAILY
  2. REMDESIVIR [Suspect]
     Active Substance: REMDESIVIR
     Indication: Breakthrough COVID-19
     Dosage: UNK
  3. TOCILIZUMAB [Suspect]
     Active Substance: TOCILIZUMAB
     Indication: Breakthrough COVID-19
     Dosage: SINGLE DOSE OF 8 MG/KG
  4. HEPARIN [Suspect]
     Active Substance: HEPARIN SODIUM
     Indication: Breakthrough COVID-19
     Dosage: UNK
     Route: 058

REACTIONS (3)
  - Pneumothorax [Fatal]
  - Acute respiratory distress syndrome [Fatal]
  - Off label use [Fatal]
